FAERS Safety Report 9042800 (Version 1)
Quarter: 2013Q1

REPORT INFORMATION
  Report Type: Report from Study
  Country: US (occurrence: US)
  Receive Date: 20130129
  Receipt Date: 20130129
  Transmission Date: 20140127
  Serious: No
  Sender: FDA-Public Use
  Company Number: US-ABBOTT-12P-163-0912311-00

PATIENT
  Age: 31 Year
  Sex: Male

DRUGS (6)
  1. HUMIRA 40 MG/0.8 ML PEN [Suspect]
     Indication: CROHN^S DISEASE
     Dates: start: 20111127, end: 20120220
  2. OMEPRAZOLE [Concomitant]
     Indication: GASTROOESOPHAGEAL REFLUX DISEASE
  3. TRILIPIX [Concomitant]
     Indication: BLOOD TRIGLYCERIDES INCREASED
  4. PENTASA [Concomitant]
     Indication: CROHN^S DISEASE
  5. SYMBICORT [Concomitant]
     Indication: HOUSE DUST ALLERGY
     Dosage: AT NIGHT
  6. SYMBICORT [Concomitant]
     Indication: SEASONAL ALLERGY

REACTIONS (4)
  - Nasal mucosal disorder [Recovered/Resolved]
  - Nasal congestion [Recovered/Resolved]
  - Acne [Recovered/Resolved]
  - Rhinitis [Recovered/Resolved]
